FAERS Safety Report 14153935 (Version 3)
Quarter: 2018Q1

REPORT INFORMATION
  Report Type: Report from Study
  Country: JP (occurrence: JP)
  Receive Date: 20171102
  Receipt Date: 20180117
  Transmission Date: 20180508
  Serious: Yes (Hospitalization)
  Sender: FDA-Public Use
  Company Number: JP-PFIZER INC-2017458582

PATIENT
  Age: 57 Year
  Sex: Male

DRUGS (7)
  1. METHOTREXATE SODIUM. [Suspect]
     Active Substance: METHOTREXATE SODIUM
     Dosage: 12 MG, WEEKLY
     Route: 048
     Dates: start: 20170703, end: 20170815
  2. XELJANZ [Suspect]
     Active Substance: TOFACITINIB CITRATE
     Indication: RHEUMATOID ARTHRITIS
     Dosage: 5 MG, 2X/DAY
     Route: 048
     Dates: start: 20170410, end: 20170912
  3. SALAZOSULFAPYRIDINE [Concomitant]
     Active Substance: SULFASALAZINE
     Indication: RHEUMATOID ARTHRITIS
     Dosage: UNK
  4. METHOTREXATE SODIUM. [Suspect]
     Active Substance: METHOTREXATE SODIUM
     Dosage: 10 MG, WEEKLY
     Route: 048
     Dates: start: 20170815, end: 20170821
  5. METHOTREXATE SODIUM. [Suspect]
     Active Substance: METHOTREXATE SODIUM
     Dosage: 14 MG, WEEKLY
     Route: 048
     Dates: start: 20170615, end: 20170703
  6. METHOTREXATE SODIUM. [Suspect]
     Active Substance: METHOTREXATE SODIUM
     Indication: RHEUMATOID ARTHRITIS
     Dosage: 16 MG, WEEKLY
     Route: 048
     Dates: end: 20170615
  7. FOLIAMIN [Concomitant]
     Active Substance: FOLIC ACID
     Dosage: UNK
     Dates: end: 20170821

REACTIONS (1)
  - Pneumonia bacterial [Unknown]

NARRATIVE: CASE EVENT DATE: 20170821
